FAERS Safety Report 4323345-2 (Version None)
Quarter: 2004Q1

REPORT INFORMATION
  Report Type: 
  Country: None (occurrence: None)
  Receive Date: 20040324
  Receipt Date: 20040324
  Transmission Date: 20041129
  Serious: Yes (Hospitalization)
  Sender: FDA-Public Use
  Company Number: None

PATIENT
  Sex: Female
  Weight: 133.3575 kg

DRUGS (5)
  1. EPIRUBICIN [Suspect]
     Indication: BREAST CANCER
     Dosage: 50MG WEEKLY INTRAVENOUS
     Route: 042
     Dates: start: 20040202, end: 20040308
  2. DOCETAXEL AVENTIS [Suspect]
     Indication: BREAST CANCER
     Dosage: 60 MG WEEKLY INTRAVENOUS
     Route: 042
     Dates: start: 20040202, end: 20040308
  3. DEXAMETHASONE [Concomitant]
  4. TYLENOL (CAPLET) [Concomitant]
  5. PROCHLORPERAZINE [Concomitant]

REACTIONS (6)
  - BODY TEMPERATURE INCREASED [None]
  - COUGH [None]
  - DYSPNOEA [None]
  - HEART RATE INCREASED [None]
  - OXYGEN SATURATION DECREASED [None]
  - RESPIRATORY DISTRESS [None]
